FAERS Safety Report 5298367-8 (Version None)
Quarter: 2007Q2

REPORT INFORMATION
  Report Type: 
  Country: None (occurrence: None)
  Receive Date: 20070416
  Receipt Date: 20070409
  Transmission Date: 20071010
  Serious: Yes (Other)
  Sender: FDA-Public Use
  Company Number: CN-PFIZER INC-2007025689

PATIENT
  Age: 25 Year
  Sex: Male

DRUGS (1)
  1. MEDROL [Suspect]
     Indication: NEPHROTIC SYNDROME
     Route: 048
     Dates: start: 20070301, end: 20070328

REACTIONS (4)
  - BONE PAIN [None]
  - DYSPNOEA [None]
  - HYPERSENSITIVITY [None]
  - STEROID WITHDRAWAL SYNDROME [None]
